FAERS Safety Report 9337543 (Version 1)
Quarter: 2013Q2

REPORT INFORMATION
  Report Type: Spontaneous
  Country: US (occurrence: US)
  Receive Date: 20130607
  Receipt Date: 20130607
  Transmission Date: 20140414
  Serious: Yes (Hospitalization, Other)
  Sender: FDA-Public Use
  Company Number: US-ROXANE LABORATORIES, INC.-2013-RO-00907RO

PATIENT
  Age: 41 Year
  Sex: Female

DRUGS (2)
  1. METHADONE [Suspect]
     Indication: DRUG DEPENDENCE
  2. STEROIDS [Concomitant]
     Indication: LICHEN SCLEROSUS

REACTIONS (4)
  - Large intestine perforation [Recovered/Resolved]
  - Faecalith [Recovered/Resolved]
  - Sepsis [Recovered/Resolved]
  - Acute respiratory distress syndrome [Recovered/Resolved]
